FAERS Safety Report 7132671-3 (Version None)
Quarter: 2010Q4

REPORT INFORMATION
  Report Type: 
  Country: None (occurrence: None)
  Receive Date: 20101130
  Receipt Date: 20101130
  Transmission Date: 20110411
  Serious: Yes (Other)
  Sender: FDA-Public Use
  Company Number: None

PATIENT
  Age: 51 Year
  Sex: Female
  Weight: 83.9154 kg

DRUGS (1)
  1. LATISSE [Suspect]
     Indication: MADAROSIS
     Dosage: 1 DROP DAILY CUTANEOUS
     Route: 003
     Dates: start: 20100812, end: 20101031

REACTIONS (3)
  - CORNEAL OPACITY [None]
  - EMOTIONAL DISTRESS [None]
  - IRIS DISORDER [None]
